FAERS Safety Report 8417426-1 (Version None)
Quarter: 2012Q2

REPORT INFORMATION
  Report Type: 
  Country: None (occurrence: None)
  Receive Date: 20120606
  Receipt Date: 20120531
  Transmission Date: 20120825
  Serious: Yes (Hospitalization, Other)
  Sender: FDA-Public Use
  Company Number: FR-PFIZER INC-2012012577

PATIENT
  Age: 53 Year
  Sex: Female
  Weight: 74 kg

DRUGS (4)
  1. PARACETAMOL [Concomitant]
     Indication: BODY TEMPERATURE INCREASED
  2. PARACETAMOL [Concomitant]
     Indication: PAIN
     Dosage: UNK, TWICE DAILY
     Route: 048
     Dates: start: 20110801, end: 20110901
  3. SOMAVERT [Suspect]
     Indication: ACROMEGALY
     Dosage: 30 MG, WEEKLY: 10 MG 3 TIMES WEEKLY
     Route: 058
     Dates: start: 20110523
  4. SOMAVERT [Suspect]
     Dosage: 15 MG, 1X/DAY
     Route: 058
     Dates: end: 20110901

REACTIONS (8)
  - JAUNDICE [None]
  - BUDD-CHIARI SYNDROME [None]
  - HEPATIC CIRRHOSIS [None]
  - PRURITUS [None]
  - ARTHRALGIA [None]
  - DRUG INEFFECTIVE [None]
  - ASCITES [None]
  - HEPATITIS [None]
